FAERS Safety Report 24773021 (Version 3)
Quarter: 2025Q1

REPORT INFORMATION
  Report Type: Spontaneous
  Country: HU (occurrence: HU)
  Receive Date: 20241225
  Receipt Date: 20250113
  Transmission Date: 20250409
  Serious: Yes (Death, Hospitalization, Other)
  Sender: EXELIXIS
  Company Number: HU-IPSEN Group, Research and Development-2024-26226

PATIENT
  Age: 78 Year
  Sex: Female
  Weight: 83 kg

DRUGS (15)
  1. CABOMETYX [Suspect]
     Active Substance: CABOZANTINIB S-MALATE
     Indication: Hepatocellular carcinoma
     Dosage: 60 MG, QD
     Route: 048
     Dates: start: 20220407, end: 20220613
  2. METFORMIN HYDROCHLORIDE\VILDAGLIPTIN [Concomitant]
     Active Substance: METFORMIN HYDROCHLORIDE\VILDAGLIPTIN
  3. GLICLAZIDE [Concomitant]
     Active Substance: GLICLAZIDE
  4. CO-PERINEVA [Concomitant]
  5. ESOMEPRAZOLE [Concomitant]
     Active Substance: ESOMEPRAZOLE
  6. GORDIUS [Concomitant]
  7. DOMPERIDONE [Concomitant]
     Active Substance: DOMPERIDONE
  8. ALBUTEROL [Concomitant]
     Active Substance: ALBUTEROL
  9. DIMENIO [Concomitant]
  10. VITAMIN D3 [Concomitant]
     Active Substance: CHOLECALCIFEROL
  11. MAGNESIUM CITRATE [Concomitant]
     Active Substance: MAGNESIUM CITRATE
  12. NEBIVOLOL [Concomitant]
     Active Substance: NEBIVOLOL
  13. EDOXABAN TOSYLATE [Concomitant]
     Active Substance: EDOXABAN TOSYLATE
  14. SORAFENIB [Concomitant]
     Active Substance: SORAFENIB
  15. FUROSEMIDE+POTASSIUM [Concomitant]

REACTIONS (14)
  - Shock haemorrhagic [Fatal]
  - Respiratory arrest [Unknown]
  - General physical health deterioration [Recovered/Resolved]
  - Anaemia [Recovered/Resolved]
  - Haematemesis [Unknown]
  - Haematochezia [Unknown]
  - Diarrhoea [Unknown]
  - Melaena [Recovered/Resolved]
  - Gait inability [Recovered/Resolved]
  - Ulcer [Recovered/Resolved]
  - Discomfort [Unknown]
  - Blood glucose decreased [Recovered/Resolved]
  - Asthenia [Unknown]
  - Adverse drug reaction [Unknown]

NARRATIVE: CASE EVENT DATE: 20220101
